FAERS Safety Report 19874497 (Version 4)
Quarter: 2022Q2

REPORT INFORMATION
  Report Type: Report from Study
  Country: DE (occurrence: DE)
  Receive Date: 20210923
  Receipt Date: 20220624
  Transmission Date: 20220721
  Serious: Yes (Hospitalization, Other)
  Sender: FDA-Public Use
  Company Number: DE-002147023-NVSC2020DE214792

PATIENT
  Age: 39 Year
  Sex: Male

DRUGS (14)
  1. METHOTREXATE [Interacting]
     Active Substance: METHOTREXATE
     Indication: Product used for unknown indication
     Dosage: UNK
     Route: 065
  2. METHOTREXATE [Interacting]
     Active Substance: METHOTREXATE
     Dosage: UNK, DRUG START DATE: 05-NOV-2019, STOP DATE: 15-JAN-2020
     Route: 065
  3. COSENTYX [Interacting]
     Active Substance: SECUKINUMAB
     Indication: Psoriatic arthropathy
     Dosage: 300 MILLIGRAM, 300 MG, UNKNOWN (PRE-FILLED SYRINGE)
     Route: 065
     Dates: start: 20160919, end: 20161107
  4. COSENTYX [Interacting]
     Active Substance: SECUKINUMAB
     Dosage: 300 MILLIGRAM, 300 MG, UNKNOWN (PRE-FILLED PEN)
     Route: 065
     Dates: start: 20161108, end: 20171007
  5. COSENTYX [Interacting]
     Active Substance: SECUKINUMAB
     Dosage: 300 MILLIGRAM, 300 MG, UNKNOWN  (PRE-FILLED PEN), STOP DATE: 08-JAN-2020 00:00
     Route: 065
     Dates: start: 20171109
  6. COSENTYX [Interacting]
     Active Substance: SECUKINUMAB
     Dosage: 300 MILLIGRAM, DRUG START DATE: 08-APR-2020, STOP DATE: 08-FEB-2021
     Route: 065
  7. COSENTYX [Interacting]
     Active Substance: SECUKINUMAB
     Dosage: 300 MILLIGRAM
     Route: 065
     Dates: start: 20160919, end: 20161107
  8. COSENTYX [Interacting]
     Active Substance: SECUKINUMAB
     Dosage: 300 MILLIGRAM
     Route: 065
     Dates: start: 20160919, end: 20161107
  9. COSENTYX [Interacting]
     Active Substance: SECUKINUMAB
     Dosage: 300 MILLIGRAM, DRUG START DATE: 09-FEB-2021, STOP DATE: 07-APR-2021
     Route: 065
  10. COSENTYX [Interacting]
     Active Substance: SECUKINUMAB
     Dosage: 300 MILLIGRAM, 300 MG, UNK(INTERMEDIATE TREATMENT BREAK;
     Route: 065
     Dates: start: 20171008, end: 20171108
  11. COSENTYX [Interacting]
     Active Substance: SECUKINUMAB
     Dosage: UNK(INTERMEDIATE TREATMENT BREAK;), DRUG START DATE: 09-JAN-2020, STOP DATE: 07-APR-2020
     Route: 065
  12. COSENTYX [Interacting]
     Active Substance: SECUKINUMAB
     Dosage: 300 MILLIGRAM, 300 MG, UNKNOWN  (PRE-FILLED PEN), STOP DATE: 08-JAN-2020
     Route: 065
     Dates: start: 20171109
  13. COSENTYX [Interacting]
     Active Substance: SECUKINUMAB
     Dosage: 300 MILLIGRAM, 300 MG, UNKNOWN  (PRE-FILLED PEN), STOP DATE: 08-JAN-2020
     Route: 065
     Dates: start: 20171109
  14. PREDNISONE [Concomitant]
     Active Substance: PREDNISONE
     Indication: Product used for unknown indication
     Dosage: UNK, DRUG START DATE: 15-OCT-2018 00:00
     Route: 048

REACTIONS (9)
  - Erysipelas [Recovered/Resolved]
  - Deep vein thrombosis [Recovered/Resolved]
  - Arthritis [Recovered/Resolved]
  - Nausea [Recovered/Resolved]
  - Drug ineffective [Recovered/Resolved]
  - Nasal congestion [Recovered/Resolved]
  - Abscess [Recovered/Resolved]
  - Tenosynovitis [Recovered/Resolved]
  - Drug interaction [Unknown]

NARRATIVE: CASE EVENT DATE: 20171204
